APPROVED DRUG PRODUCT: ACETAMINOPHEN AND CODEINE PHOSPHATE
Active Ingredient: ACETAMINOPHEN; CODEINE PHOSPHATE
Strength: 300MG;30MG
Dosage Form/Route: TABLET;ORAL
Application: A089673 | Product #003
Applicant: RHODES PHARMACEUTICALS LP
Approved: Feb 10, 1988 | RLD: No | RS: No | Type: DISCN